FAERS Safety Report 18451398 (Version 1)
Quarter: 2020Q4

REPORT INFORMATION
  Report Type: Spontaneous
  Country: JP (occurrence: JP)
  Receive Date: 20201102
  Receipt Date: 20201102
  Transmission Date: 20210114
  Serious: Yes (Other)
  Sender: FDA-Public Use
  Company Number: NVSJ2020JP010925

PATIENT

DRUGS (1)
  1. METHOTREXATE CAPSULE [Suspect]
     Active Substance: METHOTREXATE
     Indication: RHEUMATOID ARTHRITIS
     Dosage: 2 MG, BID,MORNING AND EVENING (FRI AND SAT)
     Route: 048

REACTIONS (2)
  - Pneumonia [Unknown]
  - Ascites [Unknown]
